FAERS Safety Report 5883841-3 (Version None)
Quarter: 2008Q3

REPORT INFORMATION
  Report Type: 
  Country: None (occurrence: None)
  Receive Date: 20080915
  Receipt Date: 20080904
  Transmission Date: 20090109
  Serious: Yes (Hospitalization)
  Sender: FDA-Public Use
  Company Number: A0747163A

PATIENT
  Age: 72 Year
  Sex: Female
  Weight: 72.7 kg

DRUGS (1)
  1. AVANDIA [Suspect]
     Dates: start: 20050101, end: 20080501

REACTIONS (6)
  - CHEST PAIN [None]
  - DYSPNOEA [None]
  - FLUID RETENTION [None]
  - MYOCARDIAL INFARCTION [None]
  - RESPIRATORY DISORDER [None]
  - SWELLING [None]
